FAERS Safety Report 9046310 (Version 1)
Quarter: 2013Q1

REPORT INFORMATION
  Report Type: Report from Study
  Country: CA (occurrence: CA)
  Receive Date: 20130201
  Receipt Date: 20130201
  Transmission Date: 20140127
  Serious: Yes (Other)
  Sender: FDA-Public Use
  Company Number: CA-ABBOTT-12P-028-1018510-00

PATIENT
  Age: 61 None
  Sex: Female

DRUGS (9)
  1. HUMIRA [Suspect]
     Indication: CROHN^S DISEASE
     Route: 058
     Dates: start: 20120418, end: 201211
  2. HUMIRA [Suspect]
     Route: 058
     Dates: start: 201211, end: 20130102
  3. METHOTREXATE [Concomitant]
     Indication: CROHN^S DISEASE
     Route: 048
     Dates: start: 2011
  4. ACTONEL [Concomitant]
     Indication: BONE DISORDER
     Route: 048
     Dates: start: 2002
  5. LEVOTHYROXINE [Concomitant]
     Indication: HYPOTHYROIDISM
     Route: 048
     Dates: start: 1972
  6. VITAMIN D [Concomitant]
     Indication: BONE DISORDER
     Route: 048
     Dates: start: 2011
  7. CALCIUM [Concomitant]
     Indication: BONE DISORDER
     Route: 048
     Dates: start: 2011
  8. B 12 [Concomitant]
     Indication: VITAMIN SUPPLEMENTATION
     Route: 048
     Dates: start: 2011
  9. FOLIC ACID [Concomitant]
     Indication: SUPPLEMENTATION THERAPY
     Route: 048
     Dates: start: 2011

REACTIONS (5)
  - Intestinal obstruction [Unknown]
  - Colectomy [Unknown]
  - Crohn^s disease [Unknown]
  - Weight abnormal [Not Recovered/Not Resolved]
  - Iron deficiency [Not Recovered/Not Resolved]
